FAERS Safety Report 13590011 (Version 1)
Quarter: 2017Q2

REPORT INFORMATION
  Report Type: Spontaneous
  Country: US (occurrence: US)
  Receive Date: 20170528
  Receipt Date: 20170528
  Transmission Date: 20170830
  Serious: No
  Sender: FDA-Public Use
  Company Number: None

PATIENT
  Age: 44 Year
  Sex: Female
  Weight: 64.35 kg

DRUGS (9)
  1. PROBIOTICS [Concomitant]
     Active Substance: PROBIOTICS NOS
  2. MAGNESIUM CITRATE. [Concomitant]
     Active Substance: MAGNESIUM CITRATE
  3. SERTRALINE [Concomitant]
     Active Substance: SERTRALINE HYDROCHLORIDE
  4. DAILY VITAMINS [Concomitant]
  5. VITAMIN D [Concomitant]
     Active Substance: CHOLECALCIFEROL
  6. XIIDRA [Suspect]
     Active Substance: LIFITEGRAST
     Indication: DRY EYE
     Route: 047
     Dates: start: 20170503, end: 20170528
  7. NEXIUM [Concomitant]
     Active Substance: ESOMEPRAZOLE MAGNESIUM
  8. VITAMIN E [Concomitant]
     Active Substance: .ALPHA.-TOCOPHEROL
  9. ALPRAZOLAM. [Concomitant]
     Active Substance: ALPRAZOLAM

REACTIONS (5)
  - Eye discharge [None]
  - Rhinorrhoea [None]
  - Eye pain [None]
  - Ocular hyperaemia [None]
  - Lacrimation increased [None]

NARRATIVE: CASE EVENT DATE: 20170526
